FAERS Safety Report 5903462-3 (Version None)
Quarter: 2008Q3

REPORT INFORMATION
  Report Type: 
  Country: None (occurrence: None)
  Receive Date: 20080930
  Receipt Date: 20080922
  Transmission Date: 20090109
  Serious: Yes (Hospitalization, Other)
  Sender: FDA-Public Use
  Company Number: AU-PURDUE-USA_2008_0035052

PATIENT
  Age: 41 Year
  Sex: Female

DRUGS (1)
  1. MS CONTIN [Suspect]
     Indication: MUSCULOSKELETAL PAIN
     Route: 042

REACTIONS (3)
  - CHEST PAIN [None]
  - ELECTROCARDIOGRAM ABNORMAL [None]
  - INTENTIONAL DRUG MISUSE [None]
